FAERS Safety Report 6726635-9 (Version None)
Quarter: 2010Q2

REPORT INFORMATION
  Report Type: 
  Country: None (occurrence: None)
  Receive Date: 20100514
  Receipt Date: 20100504
  Transmission Date: 20101027
  Serious: Yes (Other)
  Sender: FDA-Public Use
  Company Number: FR-ABBOTT-10P-056-0642543-00

PATIENT
  Age: 22 Year
  Sex: Male

DRUGS (9)
  1. DEPAKINE CHRONO [Suspect]
     Indication: CONVULSION
     Dosage: 750 MG DAILY
     Route: 048
     Dates: start: 20090101, end: 20091001
  2. DEPAKINE CHRONO [Suspect]
     Dosage: 2-500MG TABLETS DAILY
     Route: 048
     Dates: start: 20091001, end: 20100327
  3. DEPAKINE CHRONO [Suspect]
     Dosage: 250MG DAILY
     Route: 048
     Dates: start: 20100327, end: 20100406
  4. LAMICTAL [Concomitant]
     Indication: DRUG USE FOR UNKNOWN INDICATION
     Dosage: 2-50MG TABLETS DAILY
  5. RIVOTRIL [Concomitant]
     Indication: DRUG USE FOR UNKNOWN INDICATION
     Dosage: 12 DROPS DAILY
  6. NEORECORMON [Concomitant]
     Indication: DRUG USE FOR UNKNOWN INDICATION
  7. TARDYFERON [Concomitant]
     Indication: DRUG USE FOR UNKNOWN INDICATION
     Dosage: 80MG DAILY
  8. ATENOLOL [Concomitant]
     Indication: DRUG USE FOR UNKNOWN INDICATION
     Dosage: 50MG DAILY
  9. COLCHICINE [Concomitant]
     Indication: DRUG USE FOR UNKNOWN INDICATION
     Dates: start: 20100324, end: 20100330

REACTIONS (8)
  - ABDOMINAL PAIN [None]
  - C-REACTIVE PROTEIN INCREASED [None]
  - HYPERLIPASAEMIA [None]
  - LEUKOCYTOSIS [None]
  - NEUTROPHIL COUNT INCREASED [None]
  - PANCREATITIS [None]
  - PYREXIA [None]
  - VOMITING [None]
